FAERS Safety Report 6502443-9 (Version None)
Quarter: 2009Q4

REPORT INFORMATION
  Report Type: 
  Country: None (occurrence: None)
  Receive Date: 20091203
  Receipt Date: 20091117
  Transmission Date: 20100525
  Serious: No
  Sender: FDA-Public Use
  Company Number: B0608640A

PATIENT
  Sex: Female

DRUGS (2)
  1. PROPRANOLOL HYDROCHLORIDE (FORMULATION UNKNOWN) (GENERIC) (PROPRANOLOL [Suspect]
     Indication: SUPRAVENTRICULAR TACHYCARDIA
     Dosage: 20MG, PER DAY,
  2. ADENOSINE (FORMULATION UNKNOWN) (ADENOSINE) [Suspect]
     Indication: SUPRAVENTRICULAR TACHYCARDIA

REACTIONS (4)
  - CARDIOVASCULAR DISORDER [None]
  - DRUG EXPOSURE DURING PREGNANCY [None]
  - FOETAL GROWTH RETARDATION [None]
  - UMBILICAL CORD VASCULAR DISORDER [None]
